FAERS Safety Report 11693894 (Version 3)
Quarter: 2016Q3

REPORT INFORMATION
  Report Type: Report from Study
  Country: GR (occurrence: GR)
  Receive Date: 20151103
  Receipt Date: 20160701
  Transmission Date: 20161109
  Serious: Yes (Death, Life-Threatening, Hospitalization, Other)
  Sender: FDA-Public Use
  Company Number: PHHO2015GR017619

PATIENT
  Age: 79 Year
  Sex: Female
  Weight: 62 kg

DRUGS (8)
  1. ATORVASTAN [Concomitant]
     Indication: ACUTE CORONARY SYNDROME
     Dosage: 40 MG, QD
     Route: 048
     Dates: start: 20141117
  2. ELTROMBOPAG [Suspect]
     Active Substance: ELTROMBOPAG
     Indication: MYELODYSPLASTIC SYNDROME
     Dosage: 200 MG, QD
     Route: 048
     Dates: start: 20150901, end: 20150929
  3. COMPARATOR AZACITIDINE [Suspect]
     Active Substance: AZACITIDINE
     Indication: THROMBOCYTOPENIA
     Dosage: UNK
     Route: 058
     Dates: end: 20150907
  4. A.N.T.//ACETYLSALICYLIC ACID [Concomitant]
     Indication: ACUTE CORONARY SYNDROME
     Dosage: 100 MG, QD
     Route: 048
     Dates: start: 20141117
  5. CLOPIDOGREL [Concomitant]
     Active Substance: CLOPIDOGREL BISULFATE
     Indication: ACUTE CORONARY SYNDROME
     Dosage: 75 MG, QD
     Route: 048
     Dates: start: 20141117
  6. ELTROMBOPAG [Suspect]
     Active Substance: ELTROMBOPAG
     Indication: THROMBOCYTOPENIA
  7. COMPARATOR AZACITIDINE [Suspect]
     Active Substance: AZACITIDINE
     Indication: MYELODYSPLASTIC SYNDROME
     Dosage: 75 MG/M2, CYCLIC
     Route: 058
     Dates: start: 20150901
  8. CARVEDILOL. [Concomitant]
     Active Substance: CARVEDILOL
     Indication: ACUTE CORONARY SYNDROME
     Dosage: 12.5 MG, QD
     Route: 048
     Dates: start: 20141117

REACTIONS (1)
  - Acute leukaemia [Fatal]

NARRATIVE: CASE EVENT DATE: 20151001
